FAERS Safety Report 19891464 (Version 1)
Quarter: 2021Q3

REPORT INFORMATION
  Report Type: Report from Study
  Country: AU (occurrence: AU)
  Receive Date: 20210927
  Receipt Date: 20210927
  Transmission Date: 20211014
  Serious: Yes (Hospitalization, Other)
  Sender: FDA-Public Use
  Company Number: NVSC2021AU217015

PATIENT
  Age: 87 Year
  Sex: Female

DRUGS (5)
  1. CRESTOR [Suspect]
     Active Substance: ROSUVASTATIN CALCIUM
     Indication: PRODUCT USED FOR UNKNOWN INDICATION
     Dosage: 10 MG, UNKNOWN
     Route: 065
  2. ENTRESTO [Suspect]
     Active Substance: SACUBITRIL\VALSARTAN
     Indication: CARDIAC FAILURE
     Dosage: 50 MG, BID (24/26 MG)
     Route: 065
  3. GABAPENTIN. [Suspect]
     Active Substance: GABAPENTIN
     Indication: PRODUCT USED FOR UNKNOWN INDICATION
     Dosage: UNK UNK, UNKNOWN
     Route: 065
  4. METOPROLOL. [Suspect]
     Active Substance: METOPROLOL
     Indication: PRODUCT USED FOR UNKNOWN INDICATION
     Dosage: 25 MG, BID
     Route: 065
  5. ALDACTONE [Concomitant]
     Active Substance: SPIRONOLACTONE
     Indication: PRODUCT USED FOR UNKNOWN INDICATION
     Dosage: 25 MG (ON LOW DOSE COUPLED)
     Route: 065

REACTIONS (13)
  - Diverticulitis [Unknown]
  - Renal disorder [Unknown]
  - Malaise [Unknown]
  - Atrial fibrillation [Unknown]
  - Cardiac failure chronic [Unknown]
  - Dementia [Unknown]
  - Abdominal pain [Unknown]
  - Dyspnoea [Unknown]
  - Osteoporosis [Unknown]
  - Renal impairment [Not Recovered/Not Resolved]
  - Extrasystoles [Unknown]
  - Left ventricular dysfunction [Not Recovered/Not Resolved]
  - Weight increased [Unknown]
